FAERS Safety Report 5767985-2 (Version None)
Quarter: 2008Q2

REPORT INFORMATION
  Report Type: 
  Country: None (occurrence: None)
  Receive Date: 20080612
  Receipt Date: 20080521
  Transmission Date: 20081010
  Serious: Yes (Other)
  Sender: FDA-Public Use
  Company Number: CA-BAXTER-2008BH005351

PATIENT
  Age: 62 Year
  Sex: Female

DRUGS (8)
  1. GAMMAGARD LIQUID [Suspect]
     Indication: DERMATOMYOSITIS
     Route: 042
     Dates: start: 20080430, end: 20080430
  2. GAMMAGARD LIQUID [Suspect]
     Route: 042
     Dates: start: 20080430, end: 20080430
  3. GAMMAGARD LIQUID [Suspect]
     Route: 042
     Dates: start: 20080501, end: 20080501
  4. GAMMAGARD LIQUID [Suspect]
     Route: 042
     Dates: start: 20080501, end: 20080501
  5. GAMMAGARD LIQUID [Suspect]
     Route: 042
     Dates: start: 20080430, end: 20080430
  6. GAMMAGARD LIQUID [Suspect]
     Route: 042
     Dates: start: 20080430, end: 20080430
  7. GAMMAGARD LIQUID [Suspect]
     Route: 042
     Dates: start: 20080501, end: 20080501
  8. GAMMAGARD LIQUID [Suspect]
     Route: 042
     Dates: start: 20080501, end: 20080501

REACTIONS (6)
  - ABDOMINAL PAIN [None]
  - CHILLS [None]
  - HEADACHE [None]
  - NAUSEA [None]
  - RECTAL HAEMORRHAGE [None]
  - VOMITING [None]
